FAERS Safety Report 6305510-8 (Version None)
Quarter: 2009Q3

REPORT INFORMATION
  Report Type: 
  Country: None (occurrence: None)
  Receive Date: 20090811
  Receipt Date: 20090731
  Transmission Date: 20100115
  Serious: Yes (Hospitalization, Other)
  Sender: FDA-Public Use
  Company Number: US-ABBOTT-09P-163-0589380-00

PATIENT
  Age: 67 Year
  Sex: Female
  Weight: 72.64 kg

DRUGS (2)
  1. SYNTHROID [Suspect]
     Indication: HYPOTHYROIDISM
     Dates: start: 19740101
  2. LIPITOR [Concomitant]
     Indication: BLOOD CHOLESTEROL INCREASED

REACTIONS (7)
  - CHRONIC SINUSITIS [None]
  - HEADACHE [None]
  - HYPOTHYROIDISM [None]
  - MUSCLE SPASMS [None]
  - SURGERY [None]
  - THERAPY REGIMEN CHANGED [None]
  - WEIGHT INCREASED [None]
